FAERS Safety Report 7938698-3 (Version None)
Quarter: 2011Q4

REPORT INFORMATION
  Report Type: 
  Country: None (occurrence: None)
  Receive Date: 20111124
  Receipt Date: 20111119
  Transmission Date: 20120403
  Serious: Yes (Hospitalization)
  Sender: FDA-Public Use
  Company Number: US-BRISTOL-MYERS SQUIBB COMPANY-15110588

PATIENT
  Age: 67 Year
  Sex: Female
  Weight: 63 kg

DRUGS (3)
  1. KEPPRA [Concomitant]
     Indication: PROPHYLAXIS
     Route: 048
     Dates: start: 20100512
  2. IPILIMUMAB [Suspect]
     Indication: MALIGNANT MELANOMA
     Dosage: 4 DOSES;3MG/KG LAST DOSE: 28APR2010
     Route: 042
     Dates: start: 20100406, end: 20100428
  3. HUMULIN R [Concomitant]
     Indication: PROPHYLAXIS
     Dates: start: 20100512, end: 20100520

REACTIONS (1)
  - BRAIN OEDEMA [None]
